FAERS Safety Report 15633727 (Version 1)
Quarter: 2018Q4

REPORT INFORMATION
  Report Type: Spontaneous
  Country: US (occurrence: US)
  Receive Date: 20181119
  Receipt Date: 20181119
  Transmission Date: 20190205
  Serious: No
  Sender: FDA-Public Use
  Company Number: US-SA-2018SA315182

PATIENT
  Sex: Female

DRUGS (2)
  1. PRALUENT [Suspect]
     Active Substance: ALIROCUMAB
     Indication: HYPERLIPIDAEMIA
     Dosage: 150 MG, QOW
     Dates: end: 20181101
  2. PRALUENT [Suspect]
     Active Substance: ALIROCUMAB
     Dosage: 150 MG, QOW
     Dates: start: 20181106

REACTIONS (1)
  - Inappropriate schedule of product administration [Unknown]
